FAERS Safety Report 21952039 (Version 9)
Quarter: 2024Q1

REPORT INFORMATION
  Report Type: Spontaneous
  Country: US (occurrence: US)
  Receive Date: 20230203
  Receipt Date: 20240102
  Transmission Date: 20240410
  Serious: No
  Sender: FDA-Public Use
  Company Number: US-PFIZER INC-PV202300020408

PATIENT
  Age: 55 Year
  Sex: Female

DRUGS (1)
  1. IBRANCE [Suspect]
     Active Substance: PALBOCICLIB
     Dosage: 125 MG

REACTIONS (9)
  - Neutrophil count decreased [Unknown]
  - White blood cell count decreased [Recovered/Resolved]
  - Flatulence [Unknown]
  - Abdominal pain lower [Recovered/Resolved]
  - White blood cell count increased [Unknown]
  - Alopecia [Unknown]
  - Constipation [Not Recovered/Not Resolved]
  - Dry mouth [Unknown]
  - Alopecia [Unknown]
